FAERS Safety Report 18384885 (Version 1)
Quarter: 2020Q4

REPORT INFORMATION
  Report Type: Spontaneous
  Country: US (occurrence: US)
  Receive Date: 20201015
  Receipt Date: 20201015
  Transmission Date: 20210114
  Serious: No
  Sender: FDA-Public Use
  Company Number: US-GLENMARK PHARMACEUTICALS-2020GMK046132

PATIENT

DRUGS (1)
  1. BETAMETHASONE DIPROPIONATE. [Suspect]
     Active Substance: BETAMETHASONE DIPROPIONATE
     Indication: HERPES ZOSTER
     Dosage: UNK, SINGLE
     Route: 061
     Dates: start: 20200206, end: 20200206

REACTIONS (4)
  - Product use in unapproved indication [Unknown]
  - Application site pain [Recovered/Resolved]
  - Application site burn [Not Recovered/Not Resolved]
  - Ocular discomfort [Not Recovered/Not Resolved]

NARRATIVE: CASE EVENT DATE: 202002
